FAERS Safety Report 20038633 (Version 2)
Quarter: 2021Q4

REPORT INFORMATION
  Report Type: Report from Study
  Country: CA (occurrence: CA)
  Receive Date: 20211105
  Receipt Date: 20211117
  Transmission Date: 20220303
  Serious: Yes (Other)
  Sender: FDA-Public Use
  Company Number: CA-TAKEDA-CA202021991

PATIENT
  Age: 44 Year
  Sex: Female
  Weight: 68 kg

DRUGS (8)
  1. VELAGLUCERASE ALFA [Suspect]
     Active Substance: VELAGLUCERASE ALFA
     Indication: Gaucher^s disease
     Dosage: 11 DOSAGE FORM, 2/WEEK
     Route: 065
     Dates: start: 20111102
  2. VELAGLUCERASE ALFA [Suspect]
     Active Substance: VELAGLUCERASE ALFA
     Dosage: 4400 INTERNATIONAL UNIT/KILOGRAM, 2/WEEK
     Route: 065
     Dates: start: 20111102
  3. VELAGLUCERASE ALFA [Suspect]
     Active Substance: VELAGLUCERASE ALFA
     Dosage: 4400 INTERNATIONAL UNIT/KILOGRAM, 2/WEEK
     Route: 065
     Dates: start: 20111102
  4. VELAGLUCERASE ALFA [Suspect]
     Active Substance: VELAGLUCERASE ALFA
     Dosage: 10 DOSAGE FORM, Q2WEEKS
     Route: 065
     Dates: start: 20111102
  5. VELAGLUCERASE ALFA [Suspect]
     Active Substance: VELAGLUCERASE ALFA
     Dosage: 60 INTERNATIONAL UNIT, Q2WEEKS
     Route: 065
     Dates: start: 20111102
  6. VELAGLUCERASE ALFA [Suspect]
     Active Substance: VELAGLUCERASE ALFA
     Dosage: 60 INTERNATIONAL UNIT
     Route: 065
     Dates: start: 20110902
  7. VELAGLUCERASE ALFA [Suspect]
     Active Substance: VELAGLUCERASE ALFA
     Dosage: 10 DOSAGE FORM, Q2WEEKS
     Route: 065
     Dates: start: 20111102
  8. VELAGLUCERASE ALFA [Suspect]
     Active Substance: VELAGLUCERASE ALFA
     Dosage: 10 INTERNATIONAL UNIT, Q2WEEKS
     Route: 065
     Dates: start: 20111102

REACTIONS (13)
  - Vascular device occlusion [Not Recovered/Not Resolved]
  - Poor venous access [Not Recovered/Not Resolved]
  - Breast mass [Unknown]
  - Abdominal mass [Unknown]
  - Weight fluctuation [Not Recovered/Not Resolved]
  - Constipation [Recovered/Resolved]
  - Ocular discomfort [Unknown]
  - Back pain [Not Recovered/Not Resolved]
  - Abdominal pain [Not Recovered/Not Resolved]
  - Bone pain [Not Recovered/Not Resolved]
  - Nausea [Not Recovered/Not Resolved]
  - Fatigue [Not Recovered/Not Resolved]
  - Inappropriate schedule of product administration [Unknown]

NARRATIVE: CASE EVENT DATE: 20200706
